FAERS Safety Report 16615830 (Version 1)
Quarter: 2019Q3

REPORT INFORMATION
  Report Type: Spontaneous
  Country: CA (occurrence: CA)
  Receive Date: 20190723
  Receipt Date: 20190723
  Transmission Date: 20191004
  Serious: Yes (Life-Threatening, Hospitalization, Disabling, Other)
  Sender: FDA-Public Use
  Company Number: CA-AUROBINDO-AUR-APL-2019-042047

PATIENT

DRUGS (1)
  1. QUETIAPINE FILM-COATED TABLET [Suspect]
     Active Substance: QUETIAPINE
     Indication: INSOMNIA
     Dosage: UNK, ONCE A DAY
     Route: 048

REACTIONS (9)
  - General physical health deterioration [Recovering/Resolving]
  - Balance disorder [Recovering/Resolving]
  - Dementia [Recovering/Resolving]
  - Fall [Recovering/Resolving]
  - Infection [Recovering/Resolving]
  - Tremor [Recovering/Resolving]
  - Joint swelling [Recovering/Resolving]
  - Parkinsonism [Recovering/Resolving]
  - Off label use [Recovering/Resolving]
